FAERS Safety Report 5830088-2 (Version None)
Quarter: 2008Q3

REPORT INFORMATION
  Report Type: 
  Country: None (occurrence: None)
  Receive Date: 20080801
  Receipt Date: 20080729
  Transmission Date: 20090109
  Serious: Yes (Other)
  Sender: FDA-Public Use
  Company Number: AU-BRISTOL-MYERS SQUIBB COMPANY-14194484

PATIENT
  Age: 71 Year
  Sex: Female
  Weight: 67 kg

DRUGS (4)
  1. ERBITUX [Suspect]
     Indication: COLORECTAL CANCER METASTATIC
     Route: 042
     Dates: start: 20070701
  2. FLUOROURACIL [Concomitant]
     Indication: COLORECTAL CANCER METASTATIC
  3. IRINOTECAN HCL [Concomitant]
     Indication: COLORECTAL CANCER METASTATIC
  4. FOLINIC ACID [Concomitant]
     Indication: COLORECTAL CANCER METASTATIC

REACTIONS (2)
  - HERPES ZOSTER [None]
  - HERPES ZOSTER OPHTHALMIC [None]
